FAERS Safety Report 13154913 (Version 1)
Quarter: 2017Q1

REPORT INFORMATION
  Report Type: Report from Study
  Country: US (occurrence: US)
  Receive Date: 20170126
  Receipt Date: 20170126
  Transmission Date: 20170428
  Serious: No
  Sender: FDA-Public Use
  Company Number: US-AMGEN-USASL2016185231

PATIENT
  Age: 80 Year
  Sex: Male

DRUGS (1)
  1. KYPROLIS [Suspect]
     Active Substance: CARFILZOMIB
     Indication: PLASMA CELL MYELOMA
     Dosage: UNK ON DAY 1, 2, 8, 9, 15 AND 16 EVERY 28 DAYS
     Route: 065

REACTIONS (6)
  - Fluid retention [Unknown]
  - Peripheral swelling [Unknown]
  - Malaise [Unknown]
  - Sleep disorder [Unknown]
  - Rash pruritic [Unknown]
  - Weight increased [Unknown]

NARRATIVE: CASE EVENT DATE: 20161228
